FAERS Safety Report 5785738-6 (Version None)
Quarter: 2008Q2

REPORT INFORMATION
  Report Type: 
  Country: None (occurrence: None)
  Receive Date: 20080624
  Receipt Date: 20070620
  Transmission Date: 20081010
  Serious: No
  Sender: FDA-Public Use
  Company Number: US-ASTRAZENECA-2007UW14716

PATIENT
  Age: 71 Year
  Sex: Female

DRUGS (6)
  1. PULMICORT FLEXHALER [Suspect]
     Indication: COUGH
     Route: 055
     Dates: start: 20070601
  2. TYLENOL W/ CODEINE NO. 3 [Concomitant]
     Route: 048
     Dates: start: 20070601
  3. ZETIA [Concomitant]
  4. DIOVAN [Concomitant]
  5. CELEXA [Concomitant]
  6. VITAMINS [Concomitant]

REACTIONS (2)
  - NASAL CONGESTION [None]
  - PRURITUS [None]
